FAERS Safety Report 11221005 (Version 1)
Quarter: 2015Q2

REPORT INFORMATION
  Report Type: Spontaneous
  Country: US (occurrence: US)
  Receive Date: 20150626
  Receipt Date: 20150626
  Transmission Date: 20150821
  Serious: No
  Sender: FDA-Public Use
  Company Number: US-HORIZON-RAV-0034-2015

PATIENT
  Age: 5 Year
  Sex: Male

DRUGS (1)
  1. RAVICTI [Suspect]
     Active Substance: GLYCEROL PHENYLBUTYRATE
     Indication: ARGININOSUCCINATE SYNTHETASE DEFICIENCY
     Dosage: 3.5 ML TWICE DAILY + 4 ML TWICE DAILY BY G-TUBE ALTERNATING

REACTIONS (2)
  - Ammonia increased [Unknown]
  - Tendon disorder [Unknown]

NARRATIVE: CASE EVENT DATE: 20150622
